FAERS Safety Report 15756504 (Version 3)
Quarter: 2019Q1

REPORT INFORMATION
  Report Type: Spontaneous
  Country: US (occurrence: US)
  Receive Date: 20181224
  Receipt Date: 20190218
  Transmission Date: 20190417
  Serious: No
  Sender: FDA-Public Use
  Company Number: US-GLAXOSMITHKLINE-US2018227554

PATIENT
  Sex: Female

DRUGS (1)
  1. ARNUITY ELLIPTA [Suspect]
     Active Substance: FLUTICASONE FUROATE
     Indication: ASTHMA
     Dosage: UNK

REACTIONS (6)
  - Dysphonia [Unknown]
  - Nasal congestion [Not Recovered/Not Resolved]
  - Dry mouth [Unknown]
  - Asthma [Not Recovered/Not Resolved]
  - Wrong technique in device usage process [Unknown]
  - Product complaint [Unknown]
